FAERS Safety Report 5930406-0 (Version None)
Quarter: 2008Q4

REPORT INFORMATION
  Report Type: 
  Country: None (occurrence: None)
  Receive Date: 20081021
  Receipt Date: 20081013
  Transmission Date: 20090506
  Serious: Yes (Other)
  Sender: FDA-Public Use
  Company Number: JPI-P-005057

PATIENT
  Age: 51 Year
  Sex: Male
  Weight: 106.5953 kg

DRUGS (5)
  1. XYREM [Suspect]
     Indication: ASTHENIA
     Dosage: ORAL; 9 GM (4.5 GM, 2 IN 1 D) ,ORAL
     Route: 048
     Dates: start: 20000101, end: 20080101
  2. XYREM [Suspect]
     Indication: SLEEP DISORDER
     Dosage: ORAL; 9 GM (4.5 GM, 2 IN 1 D) ,ORAL
     Route: 048
     Dates: start: 20000101, end: 20080101
  3. XYREM [Suspect]
     Indication: ASTHENIA
     Dosage: ORAL; 9 GM (4.5 GM, 2 IN 1 D) ,ORAL
     Route: 048
     Dates: start: 20080101
  4. XYREM [Suspect]
     Indication: SLEEP DISORDER
     Dosage: ORAL; 9 GM (4.5 GM, 2 IN 1 D) ,ORAL
     Route: 048
     Dates: start: 20080101
  5. METHYLPHENIDATE HCL [Concomitant]

REACTIONS (2)
  - CEREBROVASCULAR ACCIDENT [None]
  - MUSCULAR WEAKNESS [None]
